FAERS Safety Report 16641936 (Version 1)
Quarter: 2019Q3

REPORT INFORMATION
  Report Type: Spontaneous
  Country: US (occurrence: US)
  Receive Date: 20190729
  Receipt Date: 20190729
  Transmission Date: 20191004
  Serious: Yes (Hospitalization, Other)
  Sender: FDA-Public Use
  Company Number: US-PFIZER INC-2019318218

PATIENT
  Age: 75 Year
  Sex: Female
  Weight: 64.9 kg

DRUGS (1)
  1. TIKOSYN [Suspect]
     Active Substance: DOFETILIDE
     Indication: CARDIAC FAILURE CONGESTIVE
     Dosage: 0.25 MG, 2X/DAY (250MCG(0.25MG)/ONE IN THE MORNING WITH BREAKFAST AND 1 WITH DINNER)
     Route: 048

REACTIONS (3)
  - Pulmonary mass [Unknown]
  - Cerebrovascular accident [Unknown]
  - Myocardial infarction [Unknown]

NARRATIVE: CASE EVENT DATE: 2018
